FAERS Safety Report 25616285 (Version 1)
Quarter: 2025Q3

REPORT INFORMATION
  Report Type: Spontaneous
  Country: GB (occurrence: None)
  Receive Date: 20250729
  Receipt Date: 20250729
  Transmission Date: 20251021
  Serious: Yes (Other)
  Sender: ORION
  Company Number: None

PATIENT
  Age: 27 Year
  Sex: Female
  Weight: 179 kg

DRUGS (3)
  1. METHOTREXATE [Suspect]
     Active Substance: METHOTREXATE
     Indication: Arthritis
  2. MYCOPHENOLIC ACID [Suspect]
     Active Substance: MYCOPHENOLIC ACID
     Indication: Organising pneumonia
  3. HYDROXYCHLOROQUINE [Suspect]
     Active Substance: HYDROXYCHLOROQUINE
     Indication: Arthritis

REACTIONS (3)
  - Amenorrhoea [Recovered/Resolved]
  - Product use in unapproved indication [Unknown]
  - Product prescribing issue [Unknown]
